FAERS Safety Report 8456637-6 (Version None)
Quarter: 2012Q2

REPORT INFORMATION
  Report Type: 
  Country: None (occurrence: None)
  Receive Date: 20120621
  Receipt Date: 20120614
  Transmission Date: 20120825
  Serious: Yes (Life-Threatening, Hospitalization)
  Sender: FDA-Public Use
  Company Number: US-UCBSA-059786

PATIENT
  Age: 46 Year
  Sex: Female

DRUGS (3)
  1. OXYCODONE HCL [Concomitant]
     Indication: SURGERY
     Dosage: UNKNOWN DOSE
     Dates: start: 20120101
  2. POLYETHYLENE GLYCOL [Suspect]
     Dosage: UNKNOWN DOSE, POWDER
     Dates: start: 20120401
  3. MORPHINE [Concomitant]
     Indication: SURGERY
     Dosage: UNKNOWN DOSE
     Dates: start: 20120101

REACTIONS (1)
  - ANAPHYLACTIC SHOCK [None]
